FAERS Safety Report 13756835 (Version 2)
Quarter: 2017Q3

REPORT INFORMATION
  Report Type: Spontaneous
  Country: US (occurrence: US)
  Receive Date: 20170714
  Receipt Date: 20170811
  Transmission Date: 20171127
  Serious: No
  Sender: FDA-Public Use
  Company Number: US-PFIZER INC-2017305402

PATIENT
  Age: 64 Year
  Sex: Male

DRUGS (2)
  1. BACITRACIN. [Suspect]
     Active Substance: BACITRACIN
     Dosage: UNK
  2. ETHYOL [Suspect]
     Active Substance: AMIFOSTINE
     Dosage: UNK

REACTIONS (1)
  - Drug hypersensitivity [Unknown]
